FAERS Safety Report 19011039 (Version 1)
Quarter: 2021Q1

REPORT INFORMATION
  Report Type: Spontaneous
  Country: US (occurrence: US)
  Receive Date: 20210315
  Receipt Date: 20210315
  Transmission Date: 20210420
  Serious: No
  Sender: FDA-Public Use
  Company Number: None

PATIENT
  Age: 62 Year
  Sex: Female
  Weight: 71 kg

DRUGS (3)
  1. HEPARIN [Suspect]
     Active Substance: HEPARIN SODIUM
     Indication: AORTIC VALVE REPLACEMENT
     Route: 040
     Dates: start: 20210315, end: 20210315
  2. HEPARIN [Suspect]
     Active Substance: HEPARIN SODIUM
     Indication: AORTIC VALVE REPLACEMENT
     Route: 040
     Dates: start: 20210315, end: 20210315
  3. HEPARIN [Suspect]
     Active Substance: HEPARIN SODIUM
     Indication: CARDIOPULMONARY BYPASS
     Route: 040
     Dates: start: 20210315, end: 20210315

REACTIONS (3)
  - Product substitution issue [None]
  - Product quality issue [None]
  - Coagulation time prolonged [None]

NARRATIVE: CASE EVENT DATE: 20210315
